FAERS Safety Report 5474601-6 (Version None)
Quarter: 2007Q4

REPORT INFORMATION
  Report Type: 
  Country: None (occurrence: None)
  Receive Date: 20071002
  Receipt Date: 20070926
  Transmission Date: 20080405
  Serious: Yes (Other)
  Sender: FDA-Public Use
  Company Number: DE-ASTRAZENECA-2007PK02023

PATIENT
  Age: 21787 Day
  Sex: Female
  Weight: 63 kg

DRUGS (4)
  1. SEROQUEL [Suspect]
     Indication: BIPOLAR DISORDER
     Route: 048
     Dates: start: 20070727
  2. VALPROATE SODIUM [Suspect]
     Indication: BIPOLAR I DISORDER
     Route: 048
     Dates: start: 20070730
  3. MELNEURIN [Concomitant]
     Indication: SLEEP DISORDER
     Route: 048
     Dates: start: 20070820
  4. BISOPROLOL [Concomitant]
     Indication: HYPERTENSION
     Dates: start: 20070717

REACTIONS (2)
  - LEUKOPENIA [None]
  - NEUTROPENIA [None]
